FAERS Safety Report 26082059 (Version 1)
Quarter: 2025Q4

REPORT INFORMATION
  Report Type: Spontaneous
  Country: US (occurrence: None)
  Receive Date: 20251121
  Receipt Date: 20251121
  Transmission Date: 20260117
  Serious: Yes (Disabling)
  Sender: FDA-CTU
  Company Number: None

PATIENT

DRUGS (2)
  1. SERTRALINE [Suspect]
     Active Substance: SERTRALINE HYDROCHLORIDE
     Indication: Obsessive-compulsive disorder
     Dosage: FREQUENCY : DAILY;?
     Route: 048
     Dates: start: 20200301, end: 20200304
  2. VITAMINS [Concomitant]
     Active Substance: VITAMINS

REACTIONS (25)
  - Electric shock sensation [None]
  - Akathisia [None]
  - Insomnia [None]
  - Fatigue [None]
  - Depression [None]
  - Cognitive disorder [None]
  - Amnesia [None]
  - Dyslexia [None]
  - Sensory loss [None]
  - Hypoaesthesia [None]
  - Palpitations [None]
  - Irritability [None]
  - Pruritus [None]
  - Rash [None]
  - Retinal migraine [None]
  - Visual impairment [None]
  - Trigeminal neuralgia [None]
  - Depersonalisation/derealisation disorder [None]
  - Anisocoria [None]
  - Night sweats [None]
  - Muscle spasms [None]
  - Tinnitus [None]
  - Sleep paralysis [None]
  - Drug withdrawal syndrome [None]
  - Conversion disorder [None]

NARRATIVE: CASE EVENT DATE: 20200301
